FAERS Safety Report 4984255-0 (Version None)
Quarter: 2006Q2

REPORT INFORMATION
  Report Type: 
  Country: None (occurrence: None)
  Receive Date: 20060420
  Receipt Date: 20060407
  Transmission Date: 20061013
  Serious: Yes (Hospitalization)
  Sender: FDA-Public Use
  Company Number: 223997

PATIENT
  Age: 68 Year
  Sex: Male
  Weight: 67 kg

DRUGS (7)
  1. MABTHERA (RITUXIMAB)CONC FOR SOLUTION FOR INFUSION [Suspect]
     Indication: CHRONIC LYMPHOCYTIC LEUKAEMIA
     Dosage: 700 MG, INTRAVENOUS
     Route: 042
     Dates: start: 20050609, end: 20050908
  2. FLUDARA [Suspect]
     Indication: CHRONIC LYMPHOCYTIC LEUKAEMIA
     Dosage: 50 MG, QD, ORAL
     Route: 048
     Dates: start: 20050609
  3. LASIX [Concomitant]
  4. CYCLOPHOSPHAMIDE [Suspect]
     Indication: CHRONIC LYMPHOCYTIC LEUKAEMIA
     Dosage: 300 MG, QD, ORAL
     Route: 048
     Dates: start: 20050609
  5. BACTRIM [Suspect]
     Dosage: 1, QD,
     Dates: start: 20050101
  6. ENALAPRIL MALEATE [Suspect]
  7. PENICILLIN V [Suspect]
     Dosage: 1 MIU
     Dates: start: 19960101

REACTIONS (32)
  - BLOOD PRESSURE INCREASED [None]
  - BRONCHIECTASIS [None]
  - BRONCHOALVEOLAR LAVAGE ABNORMAL [None]
  - BRONCHOSCOPY ABNORMAL [None]
  - BUNDLE BRANCH BLOCK LEFT [None]
  - CARBON DIOXIDE DECREASED [None]
  - CARDIAC MURMUR [None]
  - COMPUTERISED TOMOGRAM ABNORMAL [None]
  - COUGH [None]
  - DILATATION VENTRICULAR [None]
  - DRUG INEFFECTIVE [None]
  - DYSPNOEA [None]
  - EJECTION FRACTION DECREASED [None]
  - EOSINOPHIL PERCENTAGE INCREASED [None]
  - EOSINOPHILIA [None]
  - FIBRIN DECREASED [None]
  - HAEMOGLOBIN DECREASED [None]
  - LYMPHOCYTE PERCENTAGE DECREASED [None]
  - MITRAL VALVE INCOMPETENCE [None]
  - MONOCYTE PERCENTAGE INCREASED [None]
  - NAIL DISORDER [None]
  - OXYGEN SATURATION DECREASED [None]
  - PCO2 INCREASED [None]
  - PLATELET COUNT DECREASED [None]
  - PNEUMONITIS [None]
  - PRURITUS [None]
  - PULMONARY FUNCTION TEST ABNORMAL [None]
  - RASH ERYTHEMATOUS [None]
  - RESPIRATORY RATE INCREASED [None]
  - RHINORRHOEA [None]
  - WEIGHT DECREASED [None]
  - WHEEZING [None]
